FAERS Safety Report 9031772 (Version 1)
Quarter: 2013Q1

REPORT INFORMATION
  Report Type: Spontaneous
  Country: US (occurrence: US)
  Receive Date: 20130124
  Receipt Date: 20130124
  Transmission Date: 20140127
  Serious: Yes (Hospitalization)
  Sender: FDA-Public Use
  Company Number: US-PFIZER INC-2013020098

PATIENT
  Age: 74 Year
  Sex: Female

DRUGS (1)
  1. GEMCITABINE HYDROCHLORIDE [Suspect]
     Indication: HEPATIC CANCER METASTATIC
     Dosage: UNK
     Route: 042
     Dates: start: 20100923

REACTIONS (2)
  - Inflammation [Recovered/Resolved]
  - Pseudosepsis [Recovered/Resolved]
